FAERS Safety Report 8557538-5 (Version None)
Quarter: 2012Q3

REPORT INFORMATION
  Report Type: 
  Country: None (occurrence: None)
  Receive Date: 20120801
  Receipt Date: 20120727
  Transmission Date: 20120928
  Serious: Yes (Hospitalization, Other)
  Sender: FDA-Public Use
  Company Number: US-PFIZER INC-2012118159

PATIENT
  Sex: Female

DRUGS (8)
  1. PROTONIX [Concomitant]
     Indication: GASTROOESOPHAGEAL REFLUX DISEASE
     Dosage: UNK
     Dates: start: 20040101
  2. CHANTIX [Suspect]
     Dosage: 0.5MG/1MG
     Dates: start: 20080601, end: 20080701
  3. SINGULAIR [Concomitant]
     Indication: ASTHMA
     Dosage: UNK
     Dates: start: 20050101, end: 20090101
  4. PROAIR HFA [Concomitant]
     Indication: ASTHMA
     Dosage: UNK
     Dates: start: 20050101, end: 20090101
  5. SYNTHROID [Concomitant]
     Indication: HYPOTHYROIDISM
     Dosage: UNK
     Dates: start: 20070101
  6. CHANTIX [Suspect]
     Indication: SMOKING CESSATION THERAPY
     Dosage: 0.5MG/1MG
     Dates: start: 20070701, end: 20070901
  7. HYDROCODONE [Concomitant]
     Indication: PAIN
     Dosage: UNK
     Dates: start: 20050101, end: 20110101
  8. OXYCODONE [Concomitant]
     Indication: PAIN
     Dosage: UNK
     Dates: start: 20050101, end: 20110101

REACTIONS (9)
  - INTENTIONAL OVERDOSE [None]
  - IRRITABILITY [None]
  - DEPRESSION [None]
  - ANGER [None]
  - SUICIDE ATTEMPT [None]
  - AGGRESSION [None]
  - AGITATION [None]
  - ANXIETY [None]
  - ABNORMAL BEHAVIOUR [None]
